FAERS Safety Report 4480038-9 (Version None)
Quarter: 2004Q4

REPORT INFORMATION
  Report Type: 
  Country: None (occurrence: None)
  Receive Date: 20041018
  Receipt Date: 20041005
  Transmission Date: 20050328
  Serious: Yes (Other)
  Sender: FDA-Public Use
  Company Number: HQWYE579706OCT04

PATIENT
  Age: 41 Year
  Sex: Female

DRUGS (5)
  1. EFFEXOR XR [Suspect]
     Dosage: 150 MG 2X PER 1 DAY
  2. DEPO-PROVERA SUSPENSION/INJ [Concomitant]
  3. PREMARIN [Concomitant]
  4. PREMPRO (CONJUGATED ESTROGENS 0.45MG/MEDROXYPROGESTERONE ACETATE 1.5MG [Concomitant]
  5. PROTONIX [Concomitant]

REACTIONS (8)
  - ACTIVITIES OF DAILY LIVING IMPAIRED [None]
  - DEPRESSION SUICIDAL [None]
  - DRUG WITHDRAWAL SYNDROME [None]
  - ECONOMIC PROBLEM [None]
  - SUICIDAL IDEATION [None]
  - SUICIDE ATTEMPT [None]
  - THERAPY NON-RESPONDER [None]
  - UNEVALUABLE EVENT [None]
